FAERS Safety Report 12790552 (Version 2)
Quarter: 2016Q4

REPORT INFORMATION
  Report Type: Report from Study
  Country: AR (occurrence: AR)
  Receive Date: 20160929
  Receipt Date: 20161011
  Transmission Date: 20170207
  Serious: Yes (Other)
  Sender: FDA-Public Use
  Company Number: AR-ORION CORPORATION ORION PHARMA-ENTC2016-0563

PATIENT
  Age: 76 Year
  Sex: Male

DRUGS (9)
  1. EXELON [Suspect]
     Active Substance: RIVASTIGMINE TARTRATE
     Indication: PARKINSON^S DISEASE
  2. AMANTADINE [Concomitant]
     Active Substance: AMANTADINE
     Indication: PARKINSON^S DISEASE
     Route: 065
  3. STALEVO [Suspect]
     Active Substance: CARBIDOPA\ENTACAPONE\LEVODOPA
     Indication: PARKINSON^S DISEASE
     Dosage: 200 OT
     Route: 065
     Dates: start: 2008
  4. EXELON [Suspect]
     Active Substance: RIVASTIGMINE TARTRATE
     Indication: AMNESIA
     Dosage: 1.5 OT
     Route: 065
  5. MANTADINE [Concomitant]
     Route: 065
  6. STALEVO [Suspect]
     Active Substance: CARBIDOPA\ENTACAPONE\LEVODOPA
     Dosage: 200 OT
     Route: 065
  7. EXELON [Suspect]
     Active Substance: RIVASTIGMINE TARTRATE
     Indication: AMNESIA
     Dosage: 1.5 OT; 1 YEAR AND A HALF/2015
     Route: 062
  8. STALEVO [Suspect]
     Active Substance: CARBIDOPA\ENTACAPONE\LEVODOPA
     Dosage: 200 OT
     Route: 065
  9. EXELON [Suspect]
     Active Substance: RIVASTIGMINE TARTRATE
     Indication: PARKINSON^S DISEASE

REACTIONS (8)
  - Fall [Recovering/Resolving]
  - Parkinson^s disease [Not Recovered/Not Resolved]
  - Malaise [Not Recovered/Not Resolved]
  - Hypertension [Unknown]
  - Dysstasia [Not Recovered/Not Resolved]
  - Amnesia [Unknown]
  - Blood cholesterol increased [Unknown]
  - Insomnia [Unknown]

NARRATIVE: CASE EVENT DATE: 201609
